FAERS Safety Report 6911814-8 (Version None)
Quarter: 2010Q3

REPORT INFORMATION
  Report Type: 
  Country: None (occurrence: None)
  Receive Date: 20100806
  Receipt Date: 20070730
  Transmission Date: 20110219
  Serious: No
  Sender: FDA-Public Use
  Company Number: US-PFIZER INC-2007064262

PATIENT
  Sex: Male
  Weight: 90.9 kg

DRUGS (3)
  1. DETROL LA [Suspect]
     Indication: HYPERTONIC BLADDER
     Dates: start: 20070501, end: 20070101
  2. DRUG, UNSPECIFIED [Suspect]
     Indication: HYPERTONIC BLADDER
  3. NASONEX [Concomitant]

REACTIONS (3)
  - HEADACHE [None]
  - HYPERTENSION [None]
  - MALAISE [None]
